FAERS Safety Report 5524525-0 (Version None)
Quarter: 2007Q4

REPORT INFORMATION
  Report Type: 
  Country: None (occurrence: None)
  Receive Date: 20071122
  Receipt Date: 20071114
  Transmission Date: 20080405
  Serious: Yes (Hospitalization, Disabling)
  Sender: FDA-Public Use
  Company Number: PHBS2007PT18980

PATIENT
  Sex: Female

DRUGS (1)
  1. ZOMETA [Suspect]
     Dates: start: 20070101, end: 20070717

REACTIONS (3)
  - DIALYSIS [None]
  - OSTEONECROSIS [None]
  - RENAL FAILURE CHRONIC [None]
